FAERS Safety Report 17255643 (Version 5)
Quarter: 2020Q1

REPORT INFORMATION
  Report Type: Report from Study
  Country: KR (occurrence: KR)
  Receive Date: 20200110
  Receipt Date: 20200316
  Transmission Date: 20200409
  Serious: Yes (Hospitalization)
  Sender: FDA-Public Use
  Company Number: KR-ROCHE-2507882

PATIENT
  Age: 72 Year
  Sex: Male
  Weight: 59.8 kg

DRUGS (14)
  1. ATEZOLIZUMAB. [Suspect]
     Active Substance: ATEZOLIZUMAB
     Route: 042
     Dates: start: 20200109
  2. CARBOPLATIN. [Suspect]
     Active Substance: CARBOPLATIN
     Route: 042
     Dates: start: 20200218
  3. ETOPOSIDE. [Suspect]
     Active Substance: ETOPOSIDE
     Dosage: ON 19/FEB/2020, PATIENT RECEIVED NEXT DOSE OF ETOPOSIDE. ON 20/FEB/2020, PATIENT RECEIVED MOST RECEN
     Route: 042
     Dates: start: 20200218
  4. ATEZOLIZUMAB. [Suspect]
     Active Substance: ATEZOLIZUMAB
     Route: 042
     Dates: start: 20200218
  5. CARBOPLATIN. [Suspect]
     Active Substance: CARBOPLATIN
     Indication: SMALL CELL LUNG CANCER EXTENSIVE STAGE
     Route: 042
     Dates: start: 20191223
  6. CARBOPLATIN. [Suspect]
     Active Substance: CARBOPLATIN
     Route: 042
     Dates: start: 20200109
  7. CARBOPLATIN. [Suspect]
     Active Substance: CARBOPLATIN
     Route: 042
     Dates: start: 20200128
  8. OSELTAMIVIR [Suspect]
     Active Substance: OSELTAMIVIR
     Indication: PRODUCT USED FOR UNKNOWN INDICATION
     Route: 048
     Dates: start: 20191225
  9. ATEZOLIZUMAB. [Suspect]
     Active Substance: ATEZOLIZUMAB
     Indication: SMALL CELL LUNG CANCER EXTENSIVE STAGE
     Route: 042
     Dates: start: 20191223
  10. ETOPOSIDE. [Suspect]
     Active Substance: ETOPOSIDE
     Indication: SMALL CELL LUNG CANCER EXTENSIVE STAGE
     Dosage: ON 24/DEC/2019, PATIENT RECEIVED NEXT DOSE OF ETOPOSIDE. ON 25/DEC/2019, PATIENT RECEIVED MOST RECEN
     Route: 042
     Dates: start: 20191223
  11. ATEZOLIZUMAB. [Suspect]
     Active Substance: ATEZOLIZUMAB
     Route: 042
     Dates: start: 20200128
  12. ETOPOSIDE. [Suspect]
     Active Substance: ETOPOSIDE
     Dosage: ON 10/JAN/2020, PATIENT RECEIVED NEXT DOSE OF ETOPOSIDE. ON 11/JAN/2020, PATIENT RECEIVED MOST RECEN
     Route: 042
     Dates: start: 20200109
  13. MUCOSOL [BROMHEXINE HYDROCHLORIDE] [Suspect]
     Active Substance: BROMHEXINE HYDROCHLORIDE
     Indication: PRODUCT USED FOR UNKNOWN INDICATION
     Route: 065
  14. ETOPOSIDE. [Suspect]
     Active Substance: ETOPOSIDE
     Dosage: ON 29/JAN/2020, PATIENT RECEIVED NEXT DOSE OF ETOPOSIDE. ON 30/JAN/2020, PATIENT RECEIVED MOST RECEN
     Route: 042
     Dates: start: 20200128

REACTIONS (5)
  - Dermatitis acneiform [Recovered/Resolved]
  - Cough [Recovering/Resolving]
  - Influenza [Recovered/Resolved]
  - Decreased appetite [Recovering/Resolving]
  - Productive cough [Recovering/Resolving]

NARRATIVE: CASE EVENT DATE: 20191224
